FAERS Safety Report 17559104 (Version 1)
Quarter: 2020Q1

REPORT INFORMATION
  Report Type: Spontaneous
  Country: DE (occurrence: DE)
  Receive Date: 20200319
  Receipt Date: 20200319
  Transmission Date: 20200409
  Serious: Yes (Hospitalization)
  Sender: FDA-Public Use
  Company Number: DE-ROCHE-2570345

PATIENT
  Sex: Female

DRUGS (1)
  1. XOLAIR [Suspect]
     Active Substance: OMALIZUMAB
     Indication: ASTHMA
     Dosage: LAST XOLAIR INJECTION WAS ON 07/MAR/2020
     Route: 065
     Dates: start: 201903

REACTIONS (6)
  - Drug intolerance [Unknown]
  - Oedema [Unknown]
  - Asthma [Unknown]
  - Dyspnoea [Unknown]
  - Arthralgia [Unknown]
  - Anaphylactic reaction [Unknown]

NARRATIVE: CASE EVENT DATE: 20200308
